FAERS Safety Report 9341094 (Version 1)
Quarter: 2013Q2

REPORT INFORMATION
  Report Type: Spontaneous
  Country: US (occurrence: US)
  Receive Date: 20130610
  Receipt Date: 20130610
  Transmission Date: 20140414
  Serious: No
  Sender: FDA-Public Use
  Company Number: US-B.I. PHARMACEUTICALS,INC./RIDGEFIELD-2013-BI-15962BP

PATIENT
  Sex: Female
  Weight: 50 kg

DRUGS (7)
  1. PRADAXA [Suspect]
     Indication: ATRIAL FIBRILLATION
     Dosage: 300 MG
     Route: 048
     Dates: start: 201211
  2. AMLODIPINE [Concomitant]
     Route: 048
  3. TRAMADOL [Concomitant]
     Route: 048
  4. METOPROLOL [Concomitant]
     Route: 048
  5. VITAMIN D [Concomitant]
     Route: 048
  6. VITAMIN E [Concomitant]
     Route: 048
  7. VITAMIN B12 [Concomitant]
     Route: 048

REACTIONS (3)
  - Urticaria [Not Recovered/Not Resolved]
  - Pruritus [Not Recovered/Not Resolved]
  - Decreased appetite [Not Recovered/Not Resolved]
